FAERS Safety Report 16611230 (Version 2)
Quarter: 2019Q3

REPORT INFORMATION
  Report Type: Report from Study
  Country: MX (occurrence: MX)
  Receive Date: 20190722
  Receipt Date: 20190725
  Transmission Date: 20191004
  Serious: Yes (Other)
  Sender: FDA-Public Use
  Company Number: PHHY2018MX199202

PATIENT
  Age: 77 Year
  Sex: Female
  Weight: 62 kg

DRUGS (4)
  1. GALVUS MET [Suspect]
     Active Substance: METFORMIN HYDROCHLORIDE\VILDAGLIPTIN
     Dosage: 1 DF, QD (METFORMIN 850 MG, VILDAGLIPTIN 50 MG)
     Route: 048
  2. GALVUS MET [Suspect]
     Active Substance: METFORMIN HYDROCHLORIDE\VILDAGLIPTIN
     Indication: DIABETES MELLITUS
     Dosage: 2 DF, BID (METFORMIN 850 MG, VILDAGLIPTIN 50 MG)
     Route: 048
     Dates: end: 2018
  3. GALVUS MET [Suspect]
     Active Substance: METFORMIN HYDROCHLORIDE\VILDAGLIPTIN
     Dosage: 2 DF, QD (METFORMIN 850 MG, VILDAGLIPTIN 50 MG)
     Route: 048
     Dates: start: 2016, end: 2018
  4. GALVUS MET [Suspect]
     Active Substance: METFORMIN HYDROCHLORIDE\VILDAGLIPTIN
     Dosage: 2 DF, QD (METFORMIN 850 MG, VILDAGLIPTIN 50 MG)
     Route: 048
     Dates: start: 2018

REACTIONS (16)
  - Blindness [Unknown]
  - Fatigue [Unknown]
  - Blood cholesterol abnormal [Unknown]
  - Malaise [Unknown]
  - Deafness [Unknown]
  - Vomiting [Recovered/Resolved]
  - Memory impairment [Unknown]
  - Gait inability [Recovered/Resolved]
  - Vertigo [Recovered/Resolved]
  - Nervous system disorder [Recovered/Resolved]
  - Disorientation [Recovered/Resolved]
  - Stress [Unknown]
  - Decreased appetite [Unknown]
  - Feeling abnormal [Unknown]
  - Dizziness [Not Recovered/Not Resolved]
  - Inappropriate schedule of product administration [Unknown]

NARRATIVE: CASE EVENT DATE: 201811
